FAERS Safety Report 13195583 (Version 3)
Quarter: 2017Q4

REPORT INFORMATION
  Report Type: Spontaneous
  Country: US (occurrence: US)
  Receive Date: 20170208
  Receipt Date: 20171024
  Transmission Date: 20180320
  Serious: No
  Sender: FDA-Public Use
  Company Number: US-ASTRAZENECA-2017SE11757

PATIENT
  Age: 61 Year
  Sex: Female
  Weight: 68 kg

DRUGS (9)
  1. MOVANTIK [Suspect]
     Active Substance: NALOXEGOL OXALATE
     Indication: CONSTIPATION
     Dosage: 25.0MG UNKNOWN
     Route: 048
     Dates: start: 20171017
  2. OXYCODONE [Concomitant]
     Active Substance: OXYCODONE
     Indication: PAIN
     Route: 048
     Dates: start: 2014
  3. MOVANTIK [Suspect]
     Active Substance: NALOXEGOL OXALATE
     Indication: CONSTIPATION
     Route: 048
     Dates: start: 201609, end: 201609
  4. MOVANTIK [Suspect]
     Active Substance: NALOXEGOL OXALATE
     Indication: CONSTIPATION
     Dosage: SHE ONLY TOOK ONE A DAY, BUT NOT EVERYDAY
     Route: 048
     Dates: start: 201609
  5. METHADONE [Concomitant]
     Active Substance: METHADONE HYDROCHLORIDE
     Indication: PAIN
     Route: 048
     Dates: start: 2007
  6. EX-LAX MAXIMUM STRENGTH [Concomitant]
     Route: 065
  7. STOOL SOFTENER (DOCUSATE) [Concomitant]
     Active Substance: DOCUSATE
     Dosage: UNKNOWN
     Route: 065
  8. MOVANTIK [Suspect]
     Active Substance: NALOXEGOL OXALATE
     Indication: CONSTIPATION
     Dosage: TOOK 3 AT ONCE
     Route: 048
     Dates: start: 2015
  9. BLUE PILL [Concomitant]
     Indication: PAIN
     Route: 065

REACTIONS (13)
  - Off label use [Unknown]
  - Intentional product misuse [Unknown]
  - Drug effect delayed [Unknown]
  - Oedema peripheral [Recovered/Resolved]
  - Cataract [Unknown]
  - Extra dose administered [Unknown]
  - Weight loss poor [Unknown]
  - Drug dose omission [Unknown]
  - Abdominal discomfort [Unknown]
  - Bowel movement irregularity [Unknown]
  - Sciatica [Unknown]
  - Arthritis [Unknown]
  - Drug detoxification [Unknown]

NARRATIVE: CASE EVENT DATE: 2015
